FAERS Safety Report 4646128-2 (Version None)
Quarter: 2005Q2

REPORT INFORMATION
  Report Type: 
  Country: None (occurrence: None)
  Receive Date: 20050427
  Receipt Date: 20041216
  Transmission Date: 20051028
  Serious: No
  Sender: FDA-Public Use
  Company Number: US-GLAXOSMITHKLINE-A0537599A

PATIENT
  Age: 50 Year
  Sex: Male

DRUGS (2)
  1. ZOFRAN [Suspect]
     Dosage: 1TAB TWICE PER DAY
     Route: 048
  2. CHEMOTHERAPY [Concomitant]
     Route: 065

REACTIONS (1)
  - INSOMNIA [None]
